FAERS Safety Report 6125742-1 (Version None)
Quarter: 2009Q1

REPORT INFORMATION
  Report Type: 
  Country: None (occurrence: None)
  Receive Date: 20090318
  Receipt Date: 20090304
  Transmission Date: 20090719
  Serious: Yes (Life-Threatening, Hospitalization, Other)
  Sender: FDA-Public Use
  Company Number: 2009AL000869

PATIENT
  Age: 59 Year
  Sex: Female

DRUGS (2)
  1. FEVERALL [Suspect]
  2. CHAMPIX [Concomitant]

REACTIONS (3)
  - ANXIETY [None]
  - INTENTIONAL OVERDOSE [None]
  - SUICIDE ATTEMPT [None]
